FAERS Safety Report 9200469 (Version 2)
Quarter: 2013Q4

REPORT INFORMATION
  Report Type: Spontaneous
  Country: US (occurrence: US)
  Receive Date: 20130329
  Receipt Date: 20131004
  Transmission Date: 20140711
  Serious: Yes (Hospitalization)
  Sender: FDA-Public Use
  Company Number: US-B.I. PHARMACEUTICALS,INC./RIDGEFIELD-2013-BI-08172BP

PATIENT
  Sex: Male
  Weight: 99.79 kg

DRUGS (7)
  1. PRADAXA [Suspect]
     Indication: ATRIAL FIBRILLATION
     Dates: start: 20101214, end: 20110322
  2. MULTAQ [Concomitant]
     Indication: ATRIAL FIBRILLATION
     Dosage: 800 MG
  3. EXFORGE [Concomitant]
  4. VALACYCLOVIR [Concomitant]
  5. SINGULAIR [Concomitant]
  6. ASPIRIN [Concomitant]
  7. CARVEDILOL [Concomitant]
     Dosage: 25 MG

REACTIONS (7)
  - Haemorrhage [Unknown]
  - Pericardial effusion [Unknown]
  - Cardiac tamponade [Recovered/Resolved]
  - Renal failure acute [Unknown]
  - Coagulopathy [Unknown]
  - Anaemia [Unknown]
  - Atrial fibrillation [Recovered/Resolved]
